FAERS Safety Report 21041595 (Version 1)
Quarter: 2022Q3

REPORT INFORMATION
  Report Type: Report from Study
  Country: CA (occurrence: CA)
  Receive Date: 20220705
  Receipt Date: 20220705
  Transmission Date: 20221027
  Serious: Yes (Other)
  Sender: FDA-Public Use
  Company Number: CA-CELLTRION INC.-2022CA007028

PATIENT

DRUGS (1)
  1. TRUXIMA [Suspect]
     Active Substance: RITUXIMAB-ABBS
     Indication: Autoimmune pancreatitis
     Dosage: 1000 MILLIGRAM X 2 DOSES AT WEEK ZERO AND WEEK TWO
     Route: 042

REACTIONS (4)
  - Autoimmune pancreatitis [Unknown]
  - Inability to afford medication [Unknown]
  - Insurance issue [Unknown]
  - Off label use [Unknown]
